FAERS Safety Report 4772071-4 (Version None)
Quarter: 2005Q3

REPORT INFORMATION
  Report Type: 
  Country: None (occurrence: None)
  Receive Date: 20050918
  Receipt Date: 20050629
  Transmission Date: 20060218
  Serious: Yes (Hospitalization, Disabling)
  Sender: FDA-Public Use
  Company Number: US-MERCK-0507USA00191

PATIENT
  Age: 44 Year
  Sex: Male
  Weight: 95 kg

DRUGS (5)
  1. VIOXX [Suspect]
     Indication: SHOULDER PAIN
     Route: 048
     Dates: start: 20020722, end: 20030101
  2. IBUPROFEN [Concomitant]
     Route: 065
     Dates: start: 19980101
  3. ALLEGRA [Concomitant]
     Route: 065
     Dates: start: 20020201, end: 20050401
  4. AXID [Concomitant]
     Route: 065
     Dates: start: 20020101
  5. COMBIVIR [Concomitant]
     Route: 065
     Dates: start: 20011201, end: 20030101

REACTIONS (5)
  - BLOOD CHOLESTEROL INCREASED [None]
  - HYPOXIA [None]
  - PNEUMONIA [None]
  - PULMONARY EMBOLISM [None]
  - ROTATOR CUFF SYNDROME [None]
